FAERS Safety Report 11004658 (Version 3)
Quarter: 2015Q3

REPORT INFORMATION
  Report Type: Spontaneous
  Country: US (occurrence: US)
  Receive Date: 20150409
  Receipt Date: 20150715
  Transmission Date: 20151125
  Serious: Yes (Other)
  Sender: FDA-Public Use
  Company Number: US-009507513-1504USA003771

PATIENT
  Sex: Male
  Weight: 98.41 kg

DRUGS (1)
  1. JANUVIA [Suspect]
     Active Substance: SITAGLIPTIN PHOSPHATE
     Indication: TYPE 2 DIABETES MELLITUS
     Dosage: 100 MG,DAILY
     Route: 048
     Dates: start: 20100204, end: 20130411

REACTIONS (17)
  - Blood alkaline phosphatase increased [Unknown]
  - Renal atrophy [Unknown]
  - Adrenal mass [Unknown]
  - Diabetic neuropathy [Unknown]
  - Chills [Unknown]
  - Radiotherapy [Unknown]
  - Cardiac valve disease [Unknown]
  - Pancreatic carcinoma [Unknown]
  - Large intestine polyp [Unknown]
  - Cardiac murmur [Unknown]
  - Atrial fibrillation [Unknown]
  - Endocarditis [Unknown]
  - Subdural haematoma [Unknown]
  - Infection [Unknown]
  - Prostate cancer [Unknown]
  - Cox-Maze procedure [Unknown]
  - Dyspnoea exertional [Unknown]

NARRATIVE: CASE EVENT DATE: 2010
